FAERS Safety Report 15385643 (Version 4)
Quarter: 2019Q2

REPORT INFORMATION
  Report Type: Spontaneous
  Country: JP (occurrence: JP)
  Receive Date: 20180914
  Receipt Date: 20190516
  Transmission Date: 20190711
  Serious: Yes (Death, Life-Threatening, Other)
  Sender: FDA-Public Use
  Company Number: PHJP2018JP016155

PATIENT
  Age: 17 Year
  Sex: Female

DRUGS (4)
  1. TAFINLAR [Suspect]
     Active Substance: DABRAFENIB MESYLATE
     Indication: MALIGNANT MELANOMA STAGE III
     Dosage: 300 MG, UNK
     Route: 048
  2. MEKINIST [Suspect]
     Active Substance: TRAMETINIB DIMETHYL SULFOXIDE
     Indication: MALIGNANT MELANOMA STAGE III
     Dosage: 2 MG, UNK
     Route: 048
  3. NIVOLUMAB [Suspect]
     Active Substance: NIVOLUMAB
     Indication: MALIGNANT MELANOMA STAGE III
     Dosage: UNK
     Route: 065
  4. PEMBROLIZUMAB. [Concomitant]
     Active Substance: PEMBROLIZUMAB
     Indication: MALIGNANT MELANOMA STAGE III
     Dosage: 2 MG/KG, UNK
     Route: 065

REACTIONS (7)
  - Malaise [Unknown]
  - Pyrexia [Unknown]
  - Neoplasm progression [Fatal]
  - Metastasis [Unknown]
  - Malignant melanoma [Unknown]
  - Metastases to pituitary gland [Fatal]
  - Malignant neoplasm progression [Unknown]
